FAERS Safety Report 21549306 (Version 1)
Quarter: 2022Q4

REPORT INFORMATION
  Report Type: Spontaneous
  Country: US (occurrence: US)
  Receive Date: 20221103
  Receipt Date: 20221103
  Transmission Date: 20230112
  Serious: No
  Sender: FDA-Public Use
  Company Number: US-JNJFOC-20221045537

PATIENT
  Sex: Female

DRUGS (1)
  1. SIMPONI [Suspect]
     Active Substance: GOLIMUMAB
     Indication: Rheumatoid arthritis
     Route: 058
     Dates: start: 20220622

REACTIONS (5)
  - Urinary tract infection [Unknown]
  - Fungal infection [Not Recovered/Not Resolved]
  - Oedema peripheral [Unknown]
  - Pain [Unknown]
  - Deformity [Unknown]

NARRATIVE: CASE EVENT DATE: 20220101
